FAERS Safety Report 11514834 (Version 3)
Quarter: 2016Q2

REPORT INFORMATION
  Report Type: Spontaneous
  Country: US (occurrence: US)
  Receive Date: 20150916
  Receipt Date: 20160525
  Transmission Date: 20160815
  Serious: Yes (Hospitalization)
  Sender: FDA-Public Use
  Company Number: US-BAYER-2015-423471

PATIENT
  Age: 50 Year
  Sex: Female
  Weight: 107.3 kg

DRUGS (11)
  1. LASIX [Concomitant]
     Active Substance: FUROSEMIDE
     Indication: POLYURIA
     Dosage: UNK
     Dates: start: 2010
  2. PHENERGAN [Concomitant]
     Active Substance: PROMETHAZINE HYDROCHLORIDE
  3. MIRENA [Suspect]
     Active Substance: LEVONORGESTREL
     Indication: CONTRACEPTION
     Dosage: 20 MCG/24HR, CONT
     Route: 015
     Dates: start: 20070809, end: 20131203
  4. ARMOUR THYROID [Concomitant]
     Active Substance: THYROID, PORCINE
  5. CELEBREX [Concomitant]
     Active Substance: CELECOXIB
     Indication: ARTHRALGIA
     Dosage: UNK
     Dates: start: 2007, end: 2014
  6. LORTAB [Concomitant]
     Active Substance: ACETAMINOPHEN\HYDROCODONE BITARTRATE
  7. CYANOCOBALAMIN. [Concomitant]
     Active Substance: CYANOCOBALAMIN
     Dosage: 1000 MCG ONCE
     Route: 030
  8. NEXIUM [Concomitant]
     Active Substance: ESOMEPRAZOLE MAGNESIUM
     Dosage: 40 MG, UNK
     Route: 048
  9. ATORVASTATIN [Concomitant]
     Active Substance: ATORVASTATIN
     Dosage: 40 MG, HS
     Route: 048
  10. RESTASIS [Concomitant]
     Active Substance: CYCLOSPORINE
     Indication: DRY EYE
     Dosage: UNK
     Dates: start: 2010
  11. AMITRIPTYLINE [Concomitant]
     Active Substance: AMITRIPTYLINE
     Dosage: 25 MG, HS
     Route: 048

REACTIONS (14)
  - Device difficult to use [None]
  - Activities of daily living impaired [None]
  - Menopausal symptoms [None]
  - Procedural haemorrhage [None]
  - Hysterectomy [None]
  - Injury [None]
  - Pain [None]
  - Night sweats [None]
  - Device use error [None]
  - Embedded device [None]
  - Emotional distress [None]
  - Salpingo-oophorectomy bilateral [None]
  - Hot flush [None]
  - Device issue [None]

NARRATIVE: CASE EVENT DATE: 201309
